FAERS Safety Report 5297917-5 (Version None)
Quarter: 2007Q2

REPORT INFORMATION
  Report Type: 
  Country: None (occurrence: None)
  Receive Date: 20070416
  Receipt Date: 20070410
  Transmission Date: 20071010
  Serious: Yes (Life-Threatening, Hospitalization, Other)
  Sender: FDA-Public Use
  Company Number: US-GLAXOSMITHKLINE-A0646626A

PATIENT
  Age: 12 Year
  Sex: Male

DRUGS (2)
  1. ZOFRAN [Suspect]
     Dosage: 4MG SINGLE DOSE
     Route: 042
  2. NO CONCURRENT MEDICATION [Concomitant]

REACTIONS (5)
  - CARDIAC ARREST [None]
  - CHEST PAIN [None]
  - COGNITIVE DISORDER [None]
  - CONVULSION [None]
  - ELECTROCARDIOGRAM QT PROLONGED [None]
